FAERS Safety Report 25627829 (Version 2)
Quarter: 2025Q3

REPORT INFORMATION
  Report Type: Spontaneous
  Country: US (occurrence: US)
  Receive Date: 20250731
  Receipt Date: 20250813
  Transmission Date: 20251021
  Serious: No
  Sender: ALKERMES
  Company Number: US-ALKERMES INC.-ALK-2025-002032

PATIENT
  Age: 35 Year
  Sex: Male

DRUGS (2)
  1. ARISTADA [Suspect]
     Active Substance: ARIPIPRAZOLE LAUROXIL
     Indication: Product used for unknown indication
     Route: 030
  2. ARISTADA [Suspect]
     Active Substance: ARIPIPRAZOLE LAUROXIL
     Route: 030

REACTIONS (3)
  - Needle issue [Recovered/Resolved]
  - Incorrect dose administered [Recovered/Resolved]
  - Wrong technique in product usage process [Recovered/Resolved]

NARRATIVE: CASE EVENT DATE: 20250724
